FAERS Safety Report 13241993 (Version 1)
Quarter: 2017Q1

REPORT INFORMATION
  Report Type: Spontaneous
  Country: US (occurrence: US)
  Receive Date: 20170217
  Receipt Date: 20170217
  Transmission Date: 20170428
  Serious: No
  Sender: FDA-Public Use
  Company Number: US-ASTRAZENECA-2017SE14418

PATIENT
  Age: 17903 Day
  Sex: Female
  Weight: 81.6 kg

DRUGS (1)
  1. BYDUREON [Suspect]
     Active Substance: EXENATIDE
     Indication: TYPE 2 DIABETES MELLITUS
     Route: 058
     Dates: start: 20170110, end: 20170131

REACTIONS (4)
  - Nodule [Unknown]
  - Injection site bruising [Unknown]
  - Intentional product misuse [Unknown]
  - Injection site nodule [Unknown]

NARRATIVE: CASE EVENT DATE: 20170124
